FAERS Safety Report 8524130 (Version 2)
Quarter: 2013Q2

REPORT INFORMATION
  Report Type: Spontaneous
  Country: BR (occurrence: BR)
  Receive Date: 20120420
  Receipt Date: 20130424
  Transmission Date: 20140414
  Serious: Yes (Hospitalization)
  Sender: FDA-Public Use
  Company Number: BR-US-EMD SERONO, INC.-7126898

PATIENT
  Age: 55 Year
  Sex: Female

DRUGS (2)
  1. REBIF [Suspect]
     Indication: SECONDARY PROGRESSIVE MULTIPLE SCLEROSIS
     Route: 058
     Dates: start: 20101017
  2. AMITRIPTYLINE [Concomitant]
     Indication: PRODUCT USED FOR UNKNOWN INDICATION

REACTIONS (9)
  - Hypertension [Not Recovered/Not Resolved]
  - Upper limb fracture [Unknown]
  - Nervousness [Unknown]
  - Gait disturbance [Not Recovered/Not Resolved]
  - Muscular weakness [Not Recovered/Not Resolved]
  - Fall [Not Recovered/Not Resolved]
  - Limb deformity [Not Recovered/Not Resolved]
  - Confusional state [Not Recovered/Not Resolved]
  - Arthralgia [Not Recovered/Not Resolved]
